FAERS Safety Report 11296128 (Version 1)
Quarter: 2015Q3

REPORT INFORMATION
  Report Type: Spontaneous
  Country: US (occurrence: US)
  Receive Date: 20150722
  Receipt Date: 20150722
  Transmission Date: 20151125
  Serious: No
  Sender: FDA-Public Use
  Company Number: US-ELI_LILLY_AND_COMPANY-US200910006046

PATIENT
  Sex: Female

DRUGS (14)
  1. TYLENOL ARTHRITIS PAIN [Concomitant]
     Active Substance: ACETAMINOPHEN
     Indication: PAIN
  2. VITAMINS [Concomitant]
     Active Substance: VITAMINS
  3. CLONIDINE. [Concomitant]
     Active Substance: CLONIDINE
  4. EVISTA [Suspect]
     Active Substance: RALOXIFENE HYDROCHLORIDE
     Indication: OSTEOPOROSIS
     Dosage: 60 MG, DAILY (1/D)
     Route: 065
  5. NASONEX [Concomitant]
     Active Substance: MOMETASONE FUROATE
  6. YEAST [Concomitant]
     Active Substance: YEAST
  7. DIOVAN [Concomitant]
     Active Substance: VALSARTAN
     Indication: BLOOD PRESSURE MEASUREMENT
  8. PRIVINIL [Concomitant]
  9. MELATONIN [Concomitant]
     Active Substance: MELATONIN
  10. OMEGA 3 FISH OIL [Concomitant]
     Active Substance: FISH OIL\OMEGA-3 FATTY ACIDS
  11. ALBUTEROL. [Concomitant]
     Active Substance: ALBUTEROL
  12. LEVOTHYROXINE. [Concomitant]
     Active Substance: LEVOTHYROXINE
     Dosage: UNK, EACH MORNING
  13. CALCIUM CITRATE [Concomitant]
     Active Substance: CALCIUM CITRATE
  14. FLOVENT [Concomitant]
     Active Substance: FLUTICASONE PROPIONATE

REACTIONS (9)
  - Cataract [Unknown]
  - Basedow^s disease [Unknown]
  - Glaucoma [Unknown]
  - Drug ineffective [Not Recovered/Not Resolved]
  - Scar [Not Recovered/Not Resolved]
  - Diplopia [Unknown]
  - Asthma [Unknown]
  - Visual acuity reduced [Unknown]
  - Endocrine ophthalmopathy [Unknown]

NARRATIVE: CASE EVENT DATE: 1999
